FAERS Safety Report 16084814 (Version 1)
Quarter: 2019Q1

REPORT INFORMATION
  Report Type: Spontaneous
  Country: US (occurrence: US)
  Receive Date: 20190318
  Receipt Date: 20190318
  Transmission Date: 20190418
  Serious: No
  Sender: FDA-Public Use
  Company Number: US-AVADEL SPECIALTY PHARMACEUTICALS, LLC-2019AVA00009

PATIENT
  Age: 90 Year
  Sex: Male
  Weight: 83.9 kg

DRUGS (4)
  1. UNSPECIFIED MEDICATIONS [Concomitant]
     Active Substance: UNSPECIFIED INGREDIENT
  2. IPRATROPIUM BROMIDE. [Suspect]
     Active Substance: IPRATROPIUM BROMIDE
     Dosage: 4 DOSAGE UNITS (2 SPRAYS IN EACH NOSTRIL), 3X/DAY
     Route: 045
  3. IPRATROPIUM BROMIDE. [Suspect]
     Active Substance: IPRATROPIUM BROMIDE
     Dosage: 4 DOSAGE UNITS (2 SPRAYS IN EACH NOSTRIL), 1X/DAY IN THE MORNING
     Route: 045
  4. NOCTIVA [Suspect]
     Active Substance: DESMOPRESSIN ACETATE
     Indication: ENURESIS
     Dosage: 0.83 ?G, 1X/DAY APPROXIMATELY 30 MINUTES BEFORE BEDTIME
     Route: 045
     Dates: start: 201811, end: 201901

REACTIONS (9)
  - Nasal discomfort [Unknown]
  - Rhinorrhoea [Unknown]
  - Hypersensitivity [Unknown]
  - Off label use [Recovered/Resolved]
  - Oedema peripheral [Recovering/Resolving]
  - Product preparation issue [Recovered/Resolved]
  - Back pain [Recovered/Resolved]
  - Weight increased [Recovering/Resolving]
  - Blood sodium increased [Unknown]

NARRATIVE: CASE EVENT DATE: 201811
